FAERS Safety Report 8985668 (Version 1)
Quarter: 2012Q4

REPORT INFORMATION
  Report Type: 
  Country: GB (occurrence: GB)
  Receive Date: 20121226
  Receipt Date: 20121226
  Transmission Date: 20130627
  Serious: Yes (Death)
  Sender: FDA-Public Use
  Company Number: GB-SANOFI-AVENTIS-2012SA092840

PATIENT
  Age: 73 Year
  Sex: Male

DRUGS (8)
  1. METFORMIN [Suspect]
     Indication: HYPERGLYCEMIA
     Route: 065
     Dates: end: 20111009
  2. FRUSEMIDE [Suspect]
     Indication: FLUID RETENTION
     Route: 065
  3. ASPIRIN [Concomitant]
  4. SIMVASTATIN [Concomitant]
  5. LANSOPRAZOLE [Concomitant]
  6. BISOPROLOL [Concomitant]
  7. TRAMADOL [Concomitant]
  8. DIGOXIN [Concomitant]
     Indication: ATRIAL FIBRILLATION

REACTIONS (3)
  - Blood glucose decreased [Fatal]
  - Glomerular filtration rate decreased [Fatal]
  - Lactic acidosis [Fatal]
